FAERS Safety Report 7135567-6 (Version None)
Quarter: 2010Q4

REPORT INFORMATION
  Report Type: 
  Country: None (occurrence: None)
  Receive Date: 20101119
  Receipt Date: 20101108
  Transmission Date: 20110411
  Serious: Yes (Other)
  Sender: FDA-Public Use
  Company Number: 2010P1002386

PATIENT
  Age: 10 Year
  Sex: Male
  Weight: 33 kg

DRUGS (2)
  1. AMPHETAMINE SALTS (NO PREF. NAME) [Suspect]
     Indication: ATTENTION DEFICIT/HYPERACTIVITY DISORDER
     Dosage: 5 MG;BID;PO
     Route: 048
  2. DEXAMETHASONE [Suspect]
     Indication: DRUG DISPENSING ERROR
     Dosage: 5 MG;BID;PO
     Route: 048

REACTIONS (3)
  - CUSHING'S SYNDROME [None]
  - DRUG DISPENSING ERROR [None]
  - MEDICATION ERROR [None]
